FAERS Safety Report 23596616 (Version 3)
Quarter: 2024Q1

REPORT INFORMATION
  Report Type: Spontaneous
  Country: PT (occurrence: PT)
  Receive Date: 20240305
  Receipt Date: 20240326
  Transmission Date: 20240410
  Serious: Yes (Death, Other)
  Sender: FDA-Public Use
  Company Number: PT-B.Braun Medical Inc.-2154047

PATIENT

DRUGS (61)
  1. ACETAMINOPHEN [Suspect]
     Active Substance: ACETAMINOPHEN
  2. EZETIMIBE [Suspect]
     Active Substance: EZETIMIBE
  3. MYCOPHENOLIC ACID [Suspect]
     Active Substance: MYCOPHENOLIC ACID
  4. DUTASTERIDE [Suspect]
     Active Substance: DUTASTERIDE
  5. ESCHERICHIA COLI [Suspect]
     Active Substance: ESCHERICHIA COLI
  6. ACECLOFENAC [Suspect]
     Active Substance: ACECLOFENAC
  7. CELECOXIB [Suspect]
     Active Substance: CELECOXIB
  8. NORFLOXACIN [Suspect]
     Active Substance: NORFLOXACIN
  9. IMATINIB. [Suspect]
     Active Substance: IMATINIB MESYLATE
  10. DILTIAZEM HYDROCHLORIDE [Suspect]
     Active Substance: DILTIAZEM HYDROCHLORIDE
  11. PENTAZOCINE [Suspect]
     Active Substance: PENTAZOCINE
  12. FLUVASTATIN [Suspect]
     Active Substance: FLUVASTATIN SODIUM
  13. CILAZAPRIL ANHYDROUS [Suspect]
     Active Substance: CILAZAPRIL ANHYDROUS
  14. VORTIOXETINE [Suspect]
     Active Substance: VORTIOXETINE
  15. FLUOXETINE [Suspect]
     Active Substance: FLUOXETINE HYDROCHLORIDE
  16. BRINZOLAMIDE [Suspect]
     Active Substance: BRINZOLAMIDE
  17. ZOLEDRONIC ACID [Suspect]
     Active Substance: ZOLEDRONIC ACID
  18. DONEPEZIL [Suspect]
     Active Substance: DONEPEZIL
  19. LEDIPASVIR [Suspect]
     Active Substance: LEDIPASVIR
  20. PITAVASTATIN. [Suspect]
     Active Substance: PITAVASTATIN CALCIUM
  21. HYDROMORPHONE HYDROCHLORIDE [Suspect]
     Active Substance: HYDROMORPHONE HYDROCHLORIDE
  22. ALISKIREN. [Suspect]
     Active Substance: ALISKIREN HEMIFUMARATE
  23. IODINE [Suspect]
     Active Substance: IODINE
  24. FENOFIBRATE [Suspect]
     Active Substance: FENOFIBRATE
  25. CHOLECALCIFEROL [Suspect]
     Active Substance: CHOLECALCIFEROL
  26. BISOPROLOL FUMARATE [Suspect]
     Active Substance: BISOPROLOL FUMARATE
  27. ETANERCEPT [Suspect]
     Active Substance: ETANERCEPT
  28. ADALIMUMAB [Suspect]
     Active Substance: ADALIMUMAB\ISOPROPYL ALCOHOL
  29. PENTOXIFYLLINE [Suspect]
     Active Substance: PENTOXIFYLLINE
  30. TOCILIZUMAB [Suspect]
     Active Substance: TOCILIZUMAB
  31. LETROZOLE [Suspect]
     Active Substance: LETROZOLE
  32. INDOMETHACIN [Suspect]
     Active Substance: INDOMETHACIN
  33. PRAVASTATIN [Suspect]
     Active Substance: PRAVASTATIN
  34. EXEMESTANE [Suspect]
     Active Substance: EXEMESTANE
  35. DOMPERIDONE MALEATE [Suspect]
     Active Substance: DOMPERIDONE MALEATE
  36. HUMAN IMMUNOGLOBULIN G [Suspect]
     Active Substance: HUMAN IMMUNOGLOBULIN G
  37. VERAPAMIL HYDROCHLORIDE [Suspect]
     Active Substance: VERAPAMIL HYDROCHLORIDE
  38. IBANDRONIC ACID [Suspect]
     Active Substance: IBANDRONIC ACID
  39. VENLAFAXINE HCL [Suspect]
     Active Substance: VENLAFAXINE HYDROCHLORIDE
  40. TAMSULOSIN HYDROCHLORIDE [Suspect]
     Active Substance: TAMSULOSIN HYDROCHLORIDE
  41. POTASSIUM IODIDE [Suspect]
     Active Substance: POTASSIUM IODIDE
  42. NITROGLYCERIN [Suspect]
     Active Substance: NITROGLYCERIN
  43. SIMVASTATIN [Suspect]
     Active Substance: SIMVASTATIN
  44. MIRTAZAPINE [Suspect]
     Active Substance: MIRTAZAPINE
  45. CODEINE [Suspect]
     Active Substance: CODEINE
  46. SERTRALINE HYDROCHLORIDE [Suspect]
     Active Substance: SERTRALINE HYDROCHLORIDE
  47. ANASTROZOLE [Suspect]
     Active Substance: ANASTROZOLE
  48. ESOMEPRAZOLE. [Suspect]
     Active Substance: ESOMEPRAZOLE MAGNESIUM
  49. XYZAL [Suspect]
     Active Substance: LEVOCETIRIZINE DIHYDROCHLORIDE
  50. ESCITALOPRAM OXALATE [Suspect]
     Active Substance: ESCITALOPRAM OXALATE
  51. DOCETAXEL [Suspect]
     Active Substance: DOCETAXEL\DOCETAXEL ANHYDROUS
  52. BUPRENORPHINE [Suspect]
     Active Substance: BUPRENORPHINE
  53. ENOXAPARIN SODIUM [Suspect]
     Active Substance: ENOXAPARIN SODIUM
  54. RIBAVIRIN [Suspect]
     Active Substance: RIBAVIRIN
  55. HYDROCHLOROTHIAZIDE [Suspect]
     Active Substance: HYDROCHLOROTHIAZIDE
  56. TELMISARTAN [Suspect]
     Active Substance: TELMISARTAN
  57. ATORVASTATIN CALCIUM [Suspect]
     Active Substance: ATORVASTATIN CALCIUM
  58. SODIUM PICOSULFATE [Suspect]
     Active Substance: SODIUM PICOSULFATE
  59. ASPIRIN [Suspect]
     Active Substance: ASPIRIN
  60. TRAMADOL HYDROCHLORIDE [Suspect]
     Active Substance: TRAMADOL HYDROCHLORIDE
  61. PREGABALIN [Suspect]
     Active Substance: PREGABALIN

REACTIONS (2)
  - Haemorrhagic stroke [Fatal]
  - Tachycardia [Fatal]
